FAERS Safety Report 10194871 (Version 2)
Quarter: 2014Q2

REPORT INFORMATION
  Report Type: Spontaneous
  Country: US (occurrence: US)
  Receive Date: 20140526
  Receipt Date: 20140528
  Transmission Date: 20141212
  Serious: No
  Sender: FDA-Public Use
  Company Number: US-PFIZER INC-2014138144

PATIENT
  Age: 84 Year
  Sex: 0

DRUGS (10)
  1. DILTIAZEM HCL [Suspect]
     Dosage: UNK
  2. VISTARIL [Suspect]
     Dosage: UNK
  3. AUGMENTIN [Suspect]
     Dosage: UNK
  4. BACTRIM [Suspect]
     Dosage: UNK
  5. CIPRO [Suspect]
     Dosage: UNK
  6. COREG [Suspect]
     Dosage: UNK
  7. METAMUCIL [Suspect]
     Dosage: UNK
  8. NIACIN [Suspect]
     Dosage: UNK
  9. PRADAXA [Suspect]
     Dosage: UNK
  10. CODEINE [Suspect]
     Dosage: UNK

REACTIONS (1)
  - Drug hypersensitivity [Unknown]
